FAERS Safety Report 12536815 (Version 1)
Quarter: 2016Q3

REPORT INFORMATION
  Report Type: Report from Study
  Country: JP (occurrence: JP)
  Receive Date: 20160707
  Receipt Date: 20160707
  Transmission Date: 20161109
  Serious: Yes (Hospitalization)
  Sender: FDA-Public Use
  Company Number: JP-SA-2016SA122788

PATIENT
  Age: 69 Year
  Sex: Male
  Weight: 69.5 kg

DRUGS (8)
  1. PLAVIX [Suspect]
     Active Substance: CLOPIDOGREL BISULFATE
     Indication: CEREBROVASCULAR ACCIDENT
     Route: 065
     Dates: start: 20120508, end: 20121012
  2. ADALAT CC [Concomitant]
     Active Substance: NIFEDIPINE
     Indication: UNEVALUABLE EVENT
     Dates: end: 20121012
  3. VOGLIBOSE [Concomitant]
     Active Substance: VOGLIBOSE
     Indication: UNEVALUABLE EVENT
     Dates: end: 20121012
  4. PURSENNID [Concomitant]
     Active Substance: SENNOSIDES A AND B
     Indication: UNEVALUABLE EVENT
     Dates: start: 20120604, end: 20121012
  5. AMARYL [Concomitant]
     Active Substance: GLIMEPIRIDE
     Indication: UNEVALUABLE EVENT
     Dates: end: 20121012
  6. ARTIST [Concomitant]
     Active Substance: CARVEDILOL
     Indication: UNEVALUABLE EVENT
  7. TEGRETOL [Concomitant]
     Active Substance: CARBAMAZEPINE
     Indication: UNEVALUABLE EVENT
  8. DIOVAN [Concomitant]
     Active Substance: VALSARTAN
     Indication: UNEVALUABLE EVENT
     Dates: end: 20121012

REACTIONS (3)
  - Pyelonephritis acute [Recovered/Resolved]
  - Nephrolithiasis [Recovered/Resolved]
  - Haematuria [Recovered/Resolved]

NARRATIVE: CASE EVENT DATE: 20121010
